FAERS Safety Report 8165830-1 (Version None)
Quarter: 2012Q1

REPORT INFORMATION
  Report Type: 
  Country: None (occurrence: None)
  Receive Date: 20120223
  Receipt Date: 20120223
  Transmission Date: 20120608
  Serious: Yes (Hospitalization)
  Sender: FDA-Public Use
  Company Number: None

PATIENT
  Age: 67 Year
  Sex: Male
  Weight: 88.2 kg

DRUGS (2)
  1. CEFEPIME [Suspect]
     Indication: NEUTROPENIA
     Dosage: 2 GM TID IV
     Route: 042
     Dates: start: 20120217, end: 20120221
  2. CEFEPIME [Suspect]
     Indication: URINARY TRACT INFECTION
     Dosage: 2 GM TID IV
     Route: 042
     Dates: start: 20120217, end: 20120221

REACTIONS (1)
  - RASH [None]
